FAERS Safety Report 10529718 (Version 1)
Quarter: 2014Q4

REPORT INFORMATION
  Report Type: Other
  Country: GB (occurrence: GB)
  Receive Date: 20141021
  Receipt Date: 20141021
  Transmission Date: 20150528
  Serious: Yes (Hospitalization, Other)
  Sender: FDA-Public Use
  Company Number: GB-LUPIN PHARMACEUTICALS INC.-E2B_00002605

PATIENT
  Age: 1 Week
  Sex: Female

DRUGS (2)
  1. QUETIAPINE [Suspect]
     Active Substance: QUETIAPINE
     Indication: PSYCHOTIC DISORDER
     Route: 064
  2. QUETIAPINE [Suspect]
     Active Substance: QUETIAPINE
     Route: 063

REACTIONS (3)
  - Foetal exposure during pregnancy [Unknown]
  - Exposure during breast feeding [Unknown]
  - Dyskinesia [Recovered/Resolved]

NARRATIVE: CASE EVENT DATE: 20140827
